FAERS Safety Report 4838594-4 (Version None)
Quarter: 2005Q4

REPORT INFORMATION
  Report Type: 
  Country: None (occurrence: None)
  Receive Date: 20051024
  Receipt Date: 20050829
  Transmission Date: 20060501
  Serious: No
  Sender: FDA-Public Use
  Company Number: 216883

PATIENT
  Age: 68 Year
  Sex: Male
  Weight: 79.4 kg

DRUGS (13)
  1. XOLAIR [Suspect]
     Indication: ASTHMA
     Dosage: 375 MG, Q2W, SUBCUTANEOUS
     Route: 058
     Dates: start: 20040324, end: 20050826
  2. ADVAIR DISKUS (FLUTICASONE PROPIONATE, SALMETEROL XINAFOATE) [Concomitant]
  3. SINGULAIR [Concomitant]
  4. THEOPHYLLINE [Concomitant]
  5. DUONEB (ALBUTEROL, ALBUTEROL SULFATE, IPRATORIUM BROMIDE) [Concomitant]
  6. COMBIVENT (ALBUTEROL, ALBUTEROL SULFATE, IPRATROPIUM BRIOMIDE) [Concomitant]
  7. FLONASE [Concomitant]
  8. ALOCRIL (NEDOCROMIL SODIUM) [Concomitant]
  9. ... [Concomitant]
  10. LIPITOR [Concomitant]
  11. ALTACE [Concomitant]
  12. ZYRTEC [Concomitant]
  13. INDOMETHACIN (INDOMETHACIIN) [Concomitant]

REACTIONS (2)
  - PRURITUS [None]
  - RASH [None]
